FAERS Safety Report 24724523 (Version 1)
Quarter: 2024Q4

REPORT INFORMATION
  Report Type: Spontaneous
  Country: FR (occurrence: FR)
  Receive Date: 20241212
  Receipt Date: 20241212
  Transmission Date: 20250115
  Serious: Yes (Death)
  Sender: AMGEN
  Company Number: FR-BEH-2024186948

PATIENT
  Sex: Female

DRUGS (1)
  1. TAVNEOS [Suspect]
     Active Substance: AVACOPAN
     Indication: Product used for unknown indication
     Dosage: 60 MG, QD
     Route: 048

REACTIONS (2)
  - Sepsis [Fatal]
  - Legionella infection [Fatal]
